FAERS Safety Report 13357730 (Version 1)
Quarter: 2017Q1

REPORT INFORMATION
  Report Type: Spontaneous
  Country: CA (occurrence: CA)
  Receive Date: 20170322
  Receipt Date: 20170322
  Transmission Date: 20170429
  Serious: Yes (Other)
  Sender: FDA-Public Use
  Company Number: CA-ASTRAZENECA-2017SE27545

PATIENT

DRUGS (3)
  1. MEROPENEM. [Suspect]
     Active Substance: MEROPENEM
     Dosage: 20 MG/ML
     Route: 042
  2. SODIUM CHLORIDE. [Concomitant]
     Active Substance: SODIUM CHLORIDE
     Dosage: NAINTENANCE INFUSION AT 45ML/HR
  3. CIPROFLOXACIN. [Interacting]
     Active Substance: CIPROFLOXACIN
     Dosage: 2 MG/ML WAS GIVEN 4 HOURS AFTER THE MEROPENEM
     Route: 065

REACTIONS (2)
  - Product deposit [Unknown]
  - Drug interaction [Unknown]
